FAERS Safety Report 10043508 (Version 1)
Quarter: 2014Q1

REPORT INFORMATION
  Report Type: Spontaneous
  Country: US (occurrence: US)
  Receive Date: 20140328
  Receipt Date: 20140328
  Transmission Date: 20141002
  Serious: No
  Sender: FDA-Public Use
  Company Number: US-PFIZER INC-2014086303

PATIENT
  Age: 43 Year
  Sex: Female
  Weight: 90.7 kg

DRUGS (7)
  1. LYRICA [Suspect]
     Indication: FIBROMYALGIA
     Dosage: 200 MG, 3X/DAY
     Route: 048
     Dates: start: 2006
  2. XENICAL [Concomitant]
     Indication: HYPERTENSION
     Dosage: UNK
  3. ZYRTEC [Concomitant]
     Indication: HYPERSENSITIVITY
     Dosage: UNK
  4. CRESTOR [Concomitant]
     Indication: BLOOD CHOLESTEROL INCREASED
     Dosage: UNK
  5. ASPIRIN [Concomitant]
     Dosage: UNK
  6. CYMBALTA [Concomitant]
     Dosage: UNK
  7. MELOXICAM [Concomitant]
     Indication: MIGRAINE
     Dosage: UNK

REACTIONS (4)
  - Anaemia [Unknown]
  - Influenza [Unknown]
  - Red blood cell count decreased [Unknown]
  - White blood cell count decreased [Unknown]
